FAERS Safety Report 23870851 (Version 1)
Quarter: 2024Q2

REPORT INFORMATION
  Report Type: Spontaneous
  Country: US (occurrence: US)
  Receive Date: 20240518
  Receipt Date: 20240518
  Transmission Date: 20240716
  Serious: No
  Sender: FDA-Public Use
  Company Number: US-SA-SAC20240516000370

PATIENT
  Age: 54 Year
  Sex: Female

DRUGS (13)
  1. DUPIXENT [Suspect]
     Active Substance: DUPILUMAB
     Indication: Dermatitis atopic
     Dosage: 300 MG, QOW
     Route: 058
     Dates: start: 20230925
  2. METHOTREXATE [Concomitant]
     Active Substance: METHOTREXATE
  3. PREDNISONE [Concomitant]
     Active Substance: PREDNISONE
  4. GABAPENTIN [Concomitant]
     Active Substance: GABAPENTIN
  5. PREDNISOLONE [Concomitant]
     Active Substance: PREDNISOLONE
  6. OXYCODONE [Concomitant]
     Active Substance: OXYCODONE\OXYCODONE HYDROCHLORIDE
  7. FOLIC ACID [Concomitant]
     Active Substance: FOLIC ACID
  8. LEFLUNOMIDE [Concomitant]
     Active Substance: LEFLUNOMIDE
  9. ENBREL [Concomitant]
     Active Substance: BENZYL ALCOHOL\ETANERCEPT
  10. XELJANZ [Concomitant]
     Active Substance: TOFACITINIB CITRATE
  11. CLOBETASOL [Concomitant]
     Active Substance: CLOBETASOL
  12. SINGULAIR [Concomitant]
     Active Substance: MONTELUKAST SODIUM
  13. ORENCIA [Concomitant]
     Active Substance: ABATACEPT

REACTIONS (1)
  - Injection site pain [Unknown]

NARRATIVE: CASE EVENT DATE: 20240513
